FAERS Safety Report 6570100-9 (Version None)
Quarter: 2010Q1

REPORT INFORMATION
  Report Type: 
  Country: None (occurrence: None)
  Receive Date: 20100202
  Receipt Date: 20100202
  Transmission Date: 20100710
  Serious: Yes (Other)
  Sender: FDA-Public Use
  Company Number: None

PATIENT
  Age: 41 Year
  Sex: Female
  Weight: 90.7194 kg

DRUGS (2)
  1. ADDERALL XR 25 [Suspect]
     Indication: ATTENTION DEFICIT/HYPERACTIVITY DISORDER
     Dosage: 2 CAPSULES DAILY PO
     Route: 048
     Dates: start: 20100126, end: 20100130
  2. D-AMPHETAMINE SALT COM XR 25 MG BARR [Suspect]
     Dosage: 2 CAPSULES DAILY PO
     Route: 048
     Dates: start: 20090513, end: 20090705

REACTIONS (8)
  - ABDOMINAL DISTENSION [None]
  - AMNESIA [None]
  - CONFUSIONAL STATE [None]
  - DIARRHOEA [None]
  - FATIGUE [None]
  - HEADACHE [None]
  - IRRITABILITY [None]
  - PRODUCT QUALITY ISSUE [None]
